FAERS Safety Report 17341467 (Version 1)
Quarter: 2020Q1

REPORT INFORMATION
  Report Type: Spontaneous
  Country: US (occurrence: US)
  Receive Date: 20200129
  Receipt Date: 20200129
  Transmission Date: 20200409
  Serious: Yes (Death, Hospitalization)
  Sender: FDA-Public Use
  Company Number: US-JNJFOC-20200140247

PATIENT
  Age: 35 Year
  Sex: Male

DRUGS (2)
  1. DURAGESIC [Suspect]
     Active Substance: FENTANYL
     Indication: PRODUCT USED FOR UNKNOWN INDICATION
  2. DURAGESIC [Suspect]
     Active Substance: FENTANYL
     Route: 065

REACTIONS (3)
  - Toxicity to various agents [Fatal]
  - Intentional product use issue [Fatal]
  - Intentional product misuse [Fatal]
